FAERS Safety Report 9106286 (Version 2)
Quarter: 2013Q1

REPORT INFORMATION
  Report Type: Spontaneous
  Country: SE (occurrence: SE)
  Receive Date: 20130131
  Receipt Date: 20130131
  Transmission Date: 20140127
  Serious: Yes (Hospitalization)
  Sender: FDA-Public Use
  Company Number: SE-ASTRAZENECA-2012SE88896

PATIENT
  Age: 63 Year
  Sex: Female

DRUGS (2)
  1. ATACAND [Suspect]
     Indication: ESSENTIAL HYPERTENSION
     Route: 048
     Dates: end: 20121004
  2. AMLODIPIN [Concomitant]

REACTIONS (3)
  - Palpitations [Unknown]
  - Oedema [Unknown]
  - Rash erythematous [Unknown]
